FAERS Safety Report 13121872 (Version 3)
Quarter: 2017Q1

REPORT INFORMATION
  Report Type: Spontaneous
  Country: US (occurrence: US)
  Receive Date: 20170117
  Receipt Date: 20170320
  Transmission Date: 20170428
  Serious: Yes (Death, Other)
  Sender: FDA-Public Use
  Company Number: US-JNJFOC-20170114238

PATIENT
  Age: 88 Year
  Sex: Male

DRUGS (9)
  1. IMBRUVICA [Suspect]
     Active Substance: IBRUTINIB
     Indication: PRODUCT USED FOR UNKNOWN INDICATION
     Route: 048
     Dates: start: 20160314
  2. PROBENECID. [Concomitant]
     Active Substance: PROBENECID
  3. PREDNISONE. [Concomitant]
     Active Substance: PREDNISONE
  4. DULCOLAX NOS [Concomitant]
     Active Substance: BISACODYL OR DOCUSATE SODIUM
  5. METFORMIN [Concomitant]
     Active Substance: METFORMIN HYDROCHLORIDE
  6. CALCIUM [Concomitant]
     Active Substance: CALCIUM
  7. FLOMAX [Concomitant]
     Active Substance: TAMSULOSIN HYDROCHLORIDE
  8. FERROUS SULFATE. [Concomitant]
     Active Substance: FERROUS SULFATE
  9. PRILOSEC [Concomitant]
     Active Substance: OMEPRAZOLE MAGNESIUM

REACTIONS (12)
  - Gun shot wound [Fatal]
  - Neuropathy peripheral [Unknown]
  - Colon cancer [Unknown]
  - Product use issue [Unknown]
  - Completed suicide [Fatal]
  - Off label use [Unknown]
  - Haemoglobin abnormal [Recovering/Resolving]
  - Lymphocyte count decreased [Unknown]
  - Paraesthesia [Unknown]
  - Hypoaesthesia [Unknown]
  - White blood cell count decreased [Unknown]
  - Oedema [Unknown]

NARRATIVE: CASE EVENT DATE: 20160314
